FAERS Safety Report 4821867-9 (Version None)
Quarter: 2005Q4

REPORT INFORMATION
  Report Type: 
  Country: None (occurrence: None)
  Receive Date: 20051102
  Receipt Date: 20051013
  Transmission Date: 20060501
  Serious: Yes (Other)
  Sender: FDA-Public Use
  Company Number: DE_051017213

PATIENT
  Age: 4 Year
  Sex: Female

DRUGS (1)
  1. CEFACLOR [Suspect]
     Indication: OTITIS MEDIA
     Dosage: UNK
     Route: 065
     Dates: start: 20050924, end: 20051003

REACTIONS (3)
  - JOINT SWELLING [None]
  - SERUM SICKNESS [None]
  - URTICARIA GENERALISED [None]
